FAERS Safety Report 4888069-1 (Version None)
Quarter: 2006Q1

REPORT INFORMATION
  Report Type: 
  Country: None (occurrence: None)
  Receive Date: 20060123
  Receipt Date: 20051005
  Transmission Date: 20060701
  Serious: Yes (Disabling, Other)
  Sender: FDA-Public Use
  Company Number: US-MERCK-0510USA04087

PATIENT
  Age: 64 Year
  Sex: Female
  Weight: 64 kg

DRUGS (5)
  1. VIOXX [Suspect]
     Indication: ARTHRITIS
     Route: 048
  2. NEXIUM [Concomitant]
     Route: 065
  3. XANAX [Concomitant]
     Route: 065
  4. ZOLOFT [Concomitant]
     Route: 065
  5. CARDIZEM [Concomitant]
     Route: 065

REACTIONS (6)
  - BACK DISORDER [None]
  - CAROTID ARTERY DISEASE [None]
  - CORONARY ARTERY OCCLUSION [None]
  - DIZZINESS [None]
  - LOSS OF CONSCIOUSNESS [None]
  - PULMONARY EMBOLISM [None]
